FAERS Safety Report 8393579-9 (Version None)
Quarter: 2012Q2

REPORT INFORMATION
  Report Type: 
  Country: None (occurrence: None)
  Receive Date: 20120530
  Receipt Date: 20120518
  Transmission Date: 20120825
  Serious: Yes (Other)
  Sender: FDA-Public Use
  Company Number: TR-AMGEN-TURSP2012031836

PATIENT
  Age: 35 Year
  Sex: Male
  Weight: 79 kg

DRUGS (1)
  1. ENBREL [Suspect]
     Indication: ANKYLOSING SPONDYLITIS
     Dosage: 50 MG, WEEKLY
     Route: 058
     Dates: start: 20101104

REACTIONS (7)
  - WEIGHT INCREASED [None]
  - INFLUENZA [None]
  - ANGINA PECTORIS [None]
  - SECRETION DISCHARGE [None]
  - HYPERTENSION [None]
  - ARRHYTHMIA [None]
  - CARDIAC HYPERTROPHY [None]
